FAERS Safety Report 19685511 (Version 3)
Quarter: 2021Q4

REPORT INFORMATION
  Report Type: Spontaneous
  Country: US (occurrence: US)
  Receive Date: 20210811
  Receipt Date: 20211004
  Transmission Date: 20220303
  Serious: Yes (Death, Other)
  Sender: FDA-Public Use
  Company Number: US-ALXN-A202108939

PATIENT
  Age: 69 Year
  Sex: Male
  Weight: 119.73 kg

DRUGS (65)
  1. SOLIRIS [Suspect]
     Active Substance: ECULIZUMAB
     Indication: Myasthenia gravis
     Dosage: UNK
     Route: 042
     Dates: start: 201809
  2. PYRIDOSTIGMINE [Suspect]
     Active Substance: PYRIDOSTIGMINE
     Indication: Product used for unknown indication
     Dosage: UNK
     Route: 065
  3. PYRIDOSTIGMINE [Suspect]
     Active Substance: PYRIDOSTIGMINE
     Dosage: UNK, DECREASE TO 1 1/2 EVERY HS
     Route: 065
  4. PYRIDOSTIGMINE [Suspect]
     Active Substance: PYRIDOSTIGMINE
     Dosage: 60 MG, UNK (1.5 EVERY 3 HOURS AND 2 AT BEDTIME)
     Route: 065
  5. HUMAN IMMUNOGLOBULIN G [Suspect]
     Active Substance: HUMAN IMMUNOGLOBULIN G
     Indication: Product used for unknown indication
     Dosage: UNK
     Route: 042
  6. HUMAN IMMUNOGLOBULIN G [Suspect]
     Active Substance: HUMAN IMMUNOGLOBULIN G
     Dosage: 40 G, UNK
     Route: 042
     Dates: start: 20181105
  7. HUMAN IMMUNOGLOBULIN G [Suspect]
     Active Substance: HUMAN IMMUNOGLOBULIN G
     Dosage: 30 MG, UNK
     Route: 042
  8. HUMAN IMMUNOGLOBULIN G [Suspect]
     Active Substance: HUMAN IMMUNOGLOBULIN G
     Dosage: 40 MG, UNK
     Route: 042
     Dates: start: 202101
  9. Covid-19 Vaccine [Concomitant]
     Indication: COVID-19 immunisation
     Dosage: UNK (1ST SHOT)
     Route: 065
  10. Covid-19 Vaccine [Concomitant]
     Dosage: UNK (2ND SHOT)
     Route: 065
  11. PREDNISONE [Concomitant]
     Active Substance: PREDNISONE
     Indication: Product used for unknown indication
     Dosage: 30 MG, QD (FOR 1 MONTH)
     Route: 065
  12. PREDNISONE [Concomitant]
     Active Substance: PREDNISONE
     Dosage: 30 G, UNK
     Dates: start: 20190130
  13. PREDNISONE [Concomitant]
     Active Substance: PREDNISONE
     Dosage: 20 MG, QD (FOR 1 MONTH)
     Route: 065
     Dates: start: 202002
  14. PREDNISONE [Concomitant]
     Active Substance: PREDNISONE
     Dosage: UNK (20 MG ALTERNATING WITH 10 MG)
     Route: 065
  15. PREDNISONE [Concomitant]
     Active Substance: PREDNISONE
     Dosage: 20 MG, QD
     Route: 065
     Dates: start: 201908, end: 202006
  16. PREDNISONE [Concomitant]
     Active Substance: PREDNISONE
     Dosage: 30 MG, QD
     Route: 065
     Dates: start: 202002, end: 202103
  17. PREDNISONE [Concomitant]
     Active Substance: PREDNISONE
     Dosage: 30MG ALTERNATING WITH 10MG
     Route: 065
     Dates: start: 202103
  18. PREDNISONE [Concomitant]
     Active Substance: PREDNISONE
     Dosage: UNK, 15MG ALTERNATING WITH 5MG
     Route: 065
     Dates: start: 202106
  19. ACYCLOVIR [Concomitant]
     Active Substance: ACYCLOVIR
     Indication: Product used for unknown indication
     Dosage: 400 MG, BID
     Route: 048
  20. BACTRIM [Concomitant]
     Active Substance: SULFAMETHOXAZOLE\TRIMETHOPRIM
     Indication: Product used for unknown indication
     Dosage: UNK, 2 TIMES A WEEK
     Route: 065
  21. AZATHIOPRINE [Concomitant]
     Active Substance: AZATHIOPRINE
     Indication: Product used for unknown indication
     Dosage: 50 MG, QD
     Route: 065
  22. TAMSULOSIN HYDROCHLORIDE [Concomitant]
     Active Substance: TAMSULOSIN HYDROCHLORIDE
     Indication: Product used for unknown indication
     Dosage: 0.4 MG, QD
     Route: 048
  23. ONDANSETRON HYDROCHLORIDE [Concomitant]
     Active Substance: ONDANSETRON HYDROCHLORIDE
     Indication: Product used for unknown indication
     Dosage: 4 MG, QD (DISINTEGRATING TABLET)
     Route: 048
  24. METHOCARBAMOL [Concomitant]
     Active Substance: METHOCARBAMOL
     Indication: Product used for unknown indication
     Dosage: 750 MG, Q4H
     Route: 048
  25. MILK OF MAGNESIA [Concomitant]
     Active Substance: MAGNESIUM HYDROXIDE
     Indication: Product used for unknown indication
     Dosage: 5 ML, PRN (400 MG/5ML SUSPENSION 5 ML AT LEAST 4 HOURS BETWEEN DOSES AS NEEDED)
     Route: 048
  26. KLOR-CON M20 [Concomitant]
     Active Substance: POTASSIUM CHLORIDE
     Indication: Product used for unknown indication
     Dosage: 1 UT, QD (EXTENDED RELEASE, 1 TABLET WITH FOOD)
     Route: 048
  27. ACETAMINOPHEN\HYDROCODONE [Concomitant]
     Active Substance: ACETAMINOPHEN\HYDROCODONE
     Indication: Product used for unknown indication
     Dosage: 1 UT, PRN (10-325 MG TABLET EVERY 6 HRS)
     Route: 048
  28. FERROUS SULFATE [Concomitant]
     Active Substance: FERROUS SULFATE
     Indication: Product used for unknown indication
     Dosage: 325 MG, QD
     Route: 048
  29. DOCUSATE SODIUM [Concomitant]
     Active Substance: DOCUSATE SODIUM
     Indication: Product used for unknown indication
     Dosage: 100 MG, PRN
     Route: 048
  30. PROLIA [Concomitant]
     Active Substance: DENOSUMAB
     Indication: Product used for unknown indication
     Dosage: UNK (SOLUTION PREFILLED SYRINGE)
     Route: 058
  31. CELEXA [Concomitant]
     Active Substance: CITALOPRAM HYDROBROMIDE
     Indication: Product used for unknown indication
     Dosage: 20 MG, QD
     Route: 048
  32. BUMETANIDE [Concomitant]
     Active Substance: BUMETANIDE
     Indication: Product used for unknown indication
     Dosage: 0.5 MG, UNK
     Route: 048
  33. AZELASTINE. [Concomitant]
     Active Substance: AZELASTINE HYDROCHLORIDE
     Indication: Product used for unknown indication
     Dosage: 1 UT, BID (137 MCG/SPRAY SOLUTION 1 PUFF IN EACH NOSTRIL )
     Route: 045
  34. ASPIRIN [Concomitant]
     Active Substance: ASPIRIN
     Indication: Product used for unknown indication
     Dosage: 81 MG, QD (DELAYED RELEASE TABLET)
     Route: 048
  35. PROAIR HFA [Concomitant]
     Active Substance: ALBUTEROL SULFATE
     Indication: Product used for unknown indication
     Dosage: 1 UT (PUFF), PRN (MCG/ACT AEROSOL SOLUTION, EVERY 4 HRS)
     Route: 045
  36. ACETAMINOPHEN AND CODEINE [Concomitant]
     Active Substance: ACETAMINOPHEN\CODEINE PHOSPHATE
     Indication: Product used for unknown indication
     Dosage: 1 UT (300-30 MG), PRN (EVERY 6 HRS AS NEEDED)
     Route: 048
  37. VITAMINS [Concomitant]
     Active Substance: VITAMINS
     Indication: Product used for unknown indication
     Dosage: UNK
     Route: 065
  38. HYDROCORTISONE [Concomitant]
     Active Substance: HYDROCORTISONE
     Indication: Product used for unknown indication
     Dosage: 1 UT, BID
     Route: 054
  39. CELEBREX [Concomitant]
     Active Substance: CELECOXIB
     Indication: Product used for unknown indication
     Dosage: 1 UT, QD
     Route: 048
  40. ESCITALOPRAM OXALATE [Concomitant]
     Active Substance: ESCITALOPRAM OXALATE
     Indication: Product used for unknown indication
     Dosage: 20 MG, QD
     Route: 048
  41. FEXOFENADINE HCL [Concomitant]
     Active Substance: FEXOFENADINE HYDROCHLORIDE
     Indication: Product used for unknown indication
     Dosage: 180 MG, BID
     Route: 048
  42. BUSPIRONE HCL [Concomitant]
     Active Substance: BUSPIRONE HYDROCHLORIDE
     Indication: Product used for unknown indication
     Dosage: 5 MG, BID
     Route: 048
  43. ALBUTEROL SULFATE [Concomitant]
     Active Substance: ALBUTEROL SULFATE
     Indication: Product used for unknown indication
     Dosage: UNK, 1.25 MG/3ML, NEBULIZATION SOLUTION INHALATION
     Route: 065
  44. DILTIAZEM HYDROCHLORIDE [Concomitant]
     Active Substance: DILTIAZEM HYDROCHLORIDE
     Indication: Product used for unknown indication
     Dosage: 120 MG, UNK (AS DIRECTED)
     Route: 048
  45. DILTIAZEM HYDROCHLORIDE [Concomitant]
     Active Substance: DILTIAZEM HYDROCHLORIDE
     Dosage: 120 MG, QD
     Route: 048
  46. PARICALCITOL [Concomitant]
     Active Substance: PARICALCITOL
     Indication: Product used for unknown indication
     Dosage: 1 ?G, BID
     Route: 048
  47. PANTOPRAZOLE SODIUM [Concomitant]
     Active Substance: PANTOPRAZOLE SODIUM
     Indication: Product used for unknown indication
     Dosage: 40 MG, BID (DELAYED RELEASE)
     Route: 048
  48. LEVOTHYROXINE [Concomitant]
     Active Substance: LEVOTHYROXINE
     Indication: Product used for unknown indication
     Dosage: 50 ?G, QD
     Route: 048
  49. KETOCONAZOLE [Concomitant]
     Active Substance: KETOCONAZOLE
     Indication: Product used for unknown indication
     Dosage: 1 UT, QD
     Route: 061
  50. NAPROXEN [Concomitant]
     Active Substance: NAPROXEN
     Indication: Product used for unknown indication
     Dosage: 250 MG, PRN (Q12H)
     Route: 048
  51. SYMBICORT [Concomitant]
     Active Substance: BUDESONIDE\FORMOTEROL FUMARATE DIHYDRATE
     Indication: Product used for unknown indication
     Dosage: 2 UT, BID (160 TO 4.5 MCG/ACT)
     Route: 065
  52. SPIRIVA RESPIMAT [Concomitant]
     Active Substance: TIOTROPIUM BROMIDE
     Indication: Product used for unknown indication
     Dosage: 2 UT (PUFFS), BID (1.25 MCG/ACT AEROSOL SOLUTION )
     Route: 065
  53. ACYCLOVIR [Concomitant]
     Active Substance: ACYCLOVIR
     Indication: Product used for unknown indication
     Dosage: 400 MG, BID
     Route: 048
  54. CARBAMAZEPINE [Concomitant]
     Active Substance: CARBAMAZEPINE
     Indication: Product used for unknown indication
     Dosage: 200 MG, BID
     Route: 048
  55. BACTRIM DS [Concomitant]
     Active Substance: SULFAMETHOXAZOLE\TRIMETHOPRIM
     Indication: Product used for unknown indication
     Dosage: 1 UT, UNK (800-160 MG, TWICE A WEEK)
     Route: 048
  56. HELIUM W/OXYGEN [Concomitant]
     Indication: Product used for unknown indication
  57. SPIRONOLACTONE [Concomitant]
     Active Substance: SPIRONOLACTONE
     Indication: Product used for unknown indication
     Dosage: 25 MG, QD
     Route: 048
  58. LISINOPRIL [Concomitant]
     Active Substance: LISINOPRIL
     Indication: Product used for unknown indication
     Dosage: 10 MG, QD
     Route: 048
  59. PYRIDOSTIGMINE BROMIDE [Concomitant]
     Active Substance: PYRIDOSTIGMINE BROMIDE
     Indication: Product used for unknown indication
     Dosage: UNK UNK, PRN (1.5 TABS EVERY 4 HOURS THEN 2 TAB AT BEDTIME)
     Route: 048
  60. AZATHIOPRINE [Concomitant]
     Active Substance: AZATHIOPRINE
     Indication: Product used for unknown indication
     Dosage: 50 MG, QID
     Route: 048
  61. HYDROXYZINE HYDROCHLORIDE [Concomitant]
     Active Substance: HYDROXYZINE HYDROCHLORIDE
     Indication: Product used for unknown indication
     Dosage: 50 MG, PRN (Q6H)
     Route: 048
  62. FUROSEMIDE [Concomitant]
     Active Substance: FUROSEMIDE
     Indication: Product used for unknown indication
     Dosage: 20 MG, BID
     Route: 048
  63. MUCINEX [Concomitant]
     Active Substance: GUAIFENESIN
     Indication: Product used for unknown indication
     Dosage: 600 MG, PRN (EXTENDED RELEASE 12 HOUR, EVERY 12 HRS)
     Route: 048
  64. ZOLPIDEM TARTRATE [Concomitant]
     Active Substance: ZOLPIDEM TARTRATE
     Indication: Product used for unknown indication
     Dosage: 5 MG, QD (AT BED TIME)
     Route: 048
  65. FLOMAX [Concomitant]
     Active Substance: TAMSULOSIN HYDROCHLORIDE
     Indication: Product used for unknown indication
     Dosage: 0.4 MG, QD
     Route: 048

REACTIONS (29)
  - Myocardial infarction [Fatal]
  - Epiretinal membrane [Unknown]
  - Weight increased [Unknown]
  - Fall [Unknown]
  - Upper limb fracture [Unknown]
  - Oedema peripheral [Unknown]
  - Middle ear effusion [Unknown]
  - Dyspnoea exertional [Unknown]
  - Diastolic dysfunction [Unknown]
  - Thermal burn [Unknown]
  - Osteoarthritis [Unknown]
  - Eyelid ptosis [Unknown]
  - Muscular weakness [Unknown]
  - Flushing [Unknown]
  - Blood pressure increased [Unknown]
  - Panic attack [Unknown]
  - Muscle spasticity [Unknown]
  - Visual impairment [Unknown]
  - Gait disturbance [Unknown]
  - Dysarthria [Unknown]
  - Spinal osteoarthritis [Unknown]
  - Anxiety [Unknown]
  - Dyspnoea [Unknown]
  - Fatigue [Unknown]
  - Vision blurred [Unknown]
  - Tinnitus [Unknown]
  - Arthralgia [Unknown]
  - Asthenia [Unknown]
  - Tremor [Unknown]

NARRATIVE: CASE EVENT DATE: 20181101
